FAERS Safety Report 17367658 (Version 1)
Quarter: 2020Q1

REPORT INFORMATION
  Report Type: Spontaneous
  Country: CA (occurrence: CA)
  Receive Date: 20200204
  Receipt Date: 20200204
  Transmission Date: 20200409
  Serious: Yes (Other)
  Sender: FDA-Public Use
  Company Number: CA-TEVA-2020-CA-1178852

PATIENT
  Age: 30 Year
  Sex: Female

DRUGS (13)
  1. FOSCARNET SODIUM. [Suspect]
     Active Substance: FOSCARNET SODIUM
     Indication: CYTOMEGALOVIRUS VIRAEMIA
     Dosage: 180 MG/KG DAILY;
     Route: 042
  2. GANCICLOVIR. [Suspect]
     Active Substance: GANCICLOVIR
     Indication: CYTOMEGALOVIRUS VIRAEMIA
     Route: 042
  3. GANCICLOVIR. [Suspect]
     Active Substance: GANCICLOVIR
     Route: 042
  4. TACROLIMUS. [Suspect]
     Active Substance: TACROLIMUS
     Indication: IMMUNOSUPPRESSION
     Dosage: 14 MILLIGRAM DAILY;
     Route: 065
  5. GANCICLOVIR. [Suspect]
     Active Substance: GANCICLOVIR
     Route: 042
  6. LETERMOVIR [Suspect]
     Active Substance: LETERMOVIR
     Indication: CYTOMEGALOVIRUS VIRAEMIA
     Dosage: 480 MILLIGRAM DAILY;
     Route: 048
  7. PREVYMIS [Suspect]
     Active Substance: LETERMOVIR
     Indication: CYTOMEGALOVIRUS VIRAEMIA
     Dosage: 480 MILLIGRAM DAILY;
     Route: 048
  8. FOSCAVIR [Suspect]
     Active Substance: FOSCARNET SODIUM
     Indication: VIRAEMIA
     Dosage: 80 MG/KG DAILY;
     Route: 042
  9. AZATHIOPRINE. [Suspect]
     Active Substance: AZATHIOPRINE
     Indication: IMMUNOSUPPRESSION
     Dosage: 25 MILLIGRAM DAILY;
     Route: 065
  10. VALGANCICLOVIR HYDROCHLORIDE. [Suspect]
     Active Substance: VALGANCICLOVIR HYDROCHLORIDE
     Indication: PROPHYLAXIS
     Route: 065
  11. GANCICLOVIR. [Suspect]
     Active Substance: GANCICLOVIR
     Route: 042
  12. PREDNISONE. [Suspect]
     Active Substance: PREDNISONE
     Indication: IMMUNOSUPPRESSION
     Dosage: 15 MILLIGRAM DAILY;
     Route: 065
  13. GANCICLOVIR. [Suspect]
     Active Substance: GANCICLOVIR
     Route: 042

REACTIONS (3)
  - Drug ineffective [Unknown]
  - Haematotoxicity [Unknown]
  - Cytomegalovirus viraemia [Unknown]
